FAERS Safety Report 8871712 (Version 1)
Quarter: 2012Q4

REPORT INFORMATION
  Report Type: 
  Country: US (occurrence: US)
  Receive Date: 20121030
  Receipt Date: 20121030
  Transmission Date: 20130627
  Serious: No
  Sender: FDA-Public Use
  Company Number: US-009507513-1210USA000817

PATIENT
  Sex: Female
  Weight: 56 kg

DRUGS (2)
  1. NEXPLANON [Suspect]
     Indication: CONTRACEPTION
     Dosage: 68 mg etonogestrel/single rod
     Route: 059
     Dates: start: 20120315, end: 20120911
  2. NEXPLANON [Suspect]
     Dosage: 68 mg etonogestrel/single rod
     Route: 059
     Dates: start: 20120911

REACTIONS (2)
  - Medical device discomfort [Recovered/Resolved]
  - Device breakage [Unknown]
